FAERS Safety Report 10272730 (Version 2)
Quarter: 2014Q3

REPORT INFORMATION
  Report Type: Report from Study
  Country: NL (occurrence: NL)
  Receive Date: 20140702
  Receipt Date: 20140702
  Transmission Date: 20150326
  Serious: Yes (Hospitalization)
  Sender: FDA-Public Use
  Company Number: NL-BAYER-2013-133751

PATIENT
  Sex: Female

DRUGS (1)
  1. BETAFERON [Suspect]
     Active Substance: INTERFERON BETA-1B
     Dosage: 250 ?G, QOD
     Dates: start: 2013

REACTIONS (8)
  - Injection site erythema [None]
  - Malaise [Unknown]
  - Feeling cold [Not Recovered/Not Resolved]
  - Unevaluable event [Unknown]
  - Influenza like illness [Not Recovered/Not Resolved]
  - Rash macular [Not Recovered/Not Resolved]
  - Visual impairment [Unknown]
  - Myalgia [Not Recovered/Not Resolved]
